APPROVED DRUG PRODUCT: ATRIPLA
Active Ingredient: EFAVIRENZ; EMTRICITABINE; TENOFOVIR DISOPROXIL FUMARATE
Strength: 600MG;200MG;300MG **Federal Register determination that product was not discontinued or withdrawn for safety or effectiveness reasons**
Dosage Form/Route: TABLET;ORAL
Application: N021937 | Product #001
Applicant: GILEAD SCIENCES LLC
Approved: Jul 12, 2006 | RLD: Yes | RS: No | Type: DISCN

PATENTS:
Patent 9018192 | Expires: Jun 13, 2026
Patent 9545414 | Expires: Jun 13, 2026
Patent 9545414 | Expires: Jun 13, 2026
Patent 9018192 | Expires: Jun 13, 2026
Patent 8598185 | Expires: Apr 28, 2029